FAERS Safety Report 15722609 (Version 2)
Quarter: 2018Q4

REPORT INFORMATION
  Report Type: Spontaneous
  Country: US (occurrence: US)
  Receive Date: 20181214
  Receipt Date: 20181226
  Transmission Date: 20190205
  Serious: Yes (Death, Hospitalization)
  Sender: FDA-Public Use
  Company Number: US-LUNDBECK-DKLU2058137

PATIENT
  Age: 3 Year
  Sex: Female

DRUGS (1)
  1. SABRIL [Suspect]
     Active Substance: VIGABATRIN
     Indication: SEIZURE
     Route: 048
     Dates: start: 20161108

REACTIONS (3)
  - Cardio-respiratory arrest [Fatal]
  - Respiratory distress [Unknown]
  - Viral infection [Unknown]

NARRATIVE: CASE EVENT DATE: 20181208
